FAERS Safety Report 5012784-2 (Version None)
Quarter: 2006Q2

REPORT INFORMATION
  Report Type: 
  Country: None (occurrence: None)
  Receive Date: 20060530
  Receipt Date: 20060301
  Transmission Date: 20061013
  Serious: Yes (Other)
  Sender: FDA-Public Use
  Company Number: US-BRISTOL-MYERS SQUIBB COMPANY-13299789

PATIENT
  Age: 78 Year
  Sex: Female
  Weight: 69 kg

DRUGS (4)
  1. ERBITUX [Suspect]
     Indication: COLON CANCER STAGE IV
     Dosage: 700 MG INITIATED ON 27-OCT-2005.  LAST DOSE OF 400 MG ON 01-FEB-2006.
     Route: 042
  2. AVAPRO [Concomitant]
  3. BENADRYL [Concomitant]
     Indication: PREMEDICATION
     Route: 042
  4. SYNTHROID [Concomitant]

REACTIONS (5)
  - DERMATITIS ACNEIFORM [None]
  - HAIR GROWTH ABNORMAL [None]
  - PAIN IN EXTREMITY [None]
  - SKIN CHAPPED [None]
  - SKIN LESION [None]
